FAERS Safety Report 23719165 (Version 1)
Quarter: 2024Q2

REPORT INFORMATION
  Report Type: Spontaneous
  Country: GB (occurrence: GB)
  Receive Date: 20240408
  Receipt Date: 20240408
  Transmission Date: 20240716
  Serious: Yes (Other)
  Sender: FDA-Public Use
  Company Number: None

PATIENT
  Age: 74 Year
  Sex: Female

DRUGS (24)
  1. SERTRALINE [Suspect]
     Active Substance: SERTRALINE HYDROCHLORIDE
     Indication: Product used for unknown indication
     Dosage: UNK
     Route: 065
  2. CALCIUM CARBONATE\CHOLECALCIFEROL [Concomitant]
     Active Substance: CALCIUM CARBONATE\CHOLECALCIFEROL
     Dosage: 400 INTERNATIONAL UNIT, QD, AS PER DERMATOLOGIST
     Route: 065
  3. POLYETHYLENE GLYCOL 3350\POTASSIUM CHLORIDE\SODIUM BICARBONATE\SODIUM [Concomitant]
     Active Substance: POLYETHYLENE GLYCOL 3350\POTASSIUM CHLORIDE\SODIUM BICARBONATE\SODIUM CHLORIDE
     Dosage: 1 DOSAGE FORM, BID
     Route: 065
  4. SYMBICORT [Concomitant]
     Active Substance: BUDESONIDE\FORMOTEROL FUMARATE DIHYDRATE
     Dosage: 1 DOSAGE FORM, BID (INCREASE IF NECESSARY TO TWO PUFFS TWICE A DAY PATIENTS? OWN DRUGS (PODS)).
     Route: 055
  5. ALBUTEROL [Concomitant]
     Active Substance: ALBUTEROL
     Dosage: QID (ONE OR TWO PUFFS TO BE INHALED FOUR TIMES A DAY WHEN REQUIRED)
     Route: 055
  6. COCODAMOL [Concomitant]
     Active Substance: ACETAMINOPHEN\CODEINE PHOSPHATE
     Indication: Pain
     Dosage: TAKE 1 OR 2 EVERY 4 TO 6 HOURS. PATIENT TAKES 2 TABS ON PATIENTS OWN DRUGS.
     Route: 065
  7. COCODAMOL [Concomitant]
     Active Substance: ACETAMINOPHEN\CODEINE PHOSPHATE
     Indication: Pain
     Dosage: AS NECESSARY, TAKE 1 OR 2 EVERY 4 TO 6 HOURS. PATIENT TAKES3 DAILY TABS ON PATIENTS OWN DRUGS.
     Route: 065
  8. AMILORIDE [Concomitant]
     Active Substance: AMILORIDE
     Dosage: 5 MILLIGRAM, QD
     Route: 065
  9. HYDROXOCOBALAMIN [Concomitant]
     Active Substance: HYDROXOCOBALAMIN
     Dosage: 1 DOSAGE FORM, Q3MONTHS, 1 MG/1 ML
     Route: 065
  10. AMLODIPINE [Concomitant]
     Active Substance: AMLODIPINE BESYLATE
     Dosage: 5 MILLIGRAM, QD, SUSPENDED AS PER OESOPHAGOGASTRODUODENOSCOPY (OGS)
     Route: 065
  11. GABAPENTIN [Concomitant]
     Active Substance: GABAPENTIN
     Dosage: 600 MILLIGRAM, TID (PATIENTS? OWN DRUGS (PODS))
     Route: 065
  12. ALBUTEROL [Concomitant]
     Active Substance: ALBUTEROL
     Dosage: UNK
     Route: 065
  13. NORTRIPTYLINE [Concomitant]
     Active Substance: NORTRIPTYLINE
     Dosage: 10 MILLIGRAM, BID, AT NIGHT PT STATES DOES NOT TAKE ANYMORE ASWAS STOPPED BY GP - STATES WAS AFFECTI
     Route: 065
  14. METFORMIN [Concomitant]
     Active Substance: METFORMIN HYDROCHLORIDE
     Dosage: 500 MILLIGRAM, QD (WITH EVENING MEAL)
     Route: 065
  15. LOSARTAN [Concomitant]
     Active Substance: LOSARTAN
     Dosage: 100 MILLIGRAM, QD, SUSPENDED AS PER OGS
     Route: 065
  16. DICLOFENAC SODIUM [Concomitant]
     Active Substance: DICLOFENAC\DICLOFENAC SODIUM
     Dosage: APPLY TWICE A DAY
     Route: 065
  17. OMEPRAZOLE [Concomitant]
     Active Substance: OMEPRAZOLE
     Dosage: 40 MILLIGRAM, BID
     Route: 065
  18. SIMVASTATIN [Concomitant]
     Active Substance: SIMVASTATIN
     Indication: Blood creatine phosphokinase increased
     Dosage: 20 MILLIGRAM, QD (AT NIGHT)
     Route: 065
  19. MENTHOL [Concomitant]
     Active Substance: MENTHOL
     Dosage: TID (APPLY THREE TIMES DAILY)
     Route: 065
  20. FEXOFENADINE [Concomitant]
     Active Substance: FEXOFENADINE HYDROCHLORIDE
     Dosage: 180 MILLIGRAM, QID (ONE TO BE TAKEN UP TO FOUR TIMES DAILY)
     Route: 065
  21. FERROUS SULFATE [Concomitant]
     Active Substance: FERROUS SULFATE
     Dosage: 325 MILLIGRAM, QD (EACH DAY BEFORE FOOD)
     Route: 065
  22. LEVOTHYROXINE SODIUM [Concomitant]
     Active Substance: LEVOTHYROXINE SODIUM
     Dosage: 100 MICROGRAM, BID
     Route: 065
  23. MEBEVERINE [Concomitant]
     Active Substance: MEBEVERINE
     Dosage: 200 MILLIGRAM, BID (1 IN THE MORNING AND ONE IN THE EVENING) . SWALLOW WITH AT LEAST 100 ML OF WATER
     Route: 065
  24. PARAFFIN\WAX, EMULSIFYING [Concomitant]
     Active Substance: PARAFFIN\WAX, EMULSIFYING
     Dosage: QD (APPLY 3 - 4 TIMES DAILY)
     Route: 065

REACTIONS (1)
  - Femur fracture [Unknown]
